FAERS Safety Report 11487870 (Version 1)
Quarter: 2015Q3

REPORT INFORMATION
  Report Type: Spontaneous
  Country: US (occurrence: US)
  Receive Date: 20150909
  Receipt Date: 20150909
  Transmission Date: 20151125
  Serious: Yes (Other)
  Sender: FDA-Public Use
  Company Number: US-PFIZER INC-2015295605

PATIENT
  Age: 31 Year
  Sex: Male
  Weight: 64.4 kg

DRUGS (3)
  1. CUPREX [Concomitant]
     Dosage: UNK
  2. VIAGRA [Suspect]
     Active Substance: SILDENAFIL CITRATE
     Dosage: 50 MG, (TOOK ONE, WAIT HALF AN HOUR THEN TAKE ANOTHER AND WAIT FOR HALF AN HOUR THEN TAKE ANOTHER)
     Dates: start: 20150831
  3. OLANZAPINE. [Concomitant]
     Active Substance: OLANZAPINE
     Dosage: UNK

REACTIONS (3)
  - Penile haemorrhage [Unknown]
  - Penis disorder [Unknown]
  - Intentional product use issue [Unknown]
